FAERS Safety Report 9806388 (Version 1)
Quarter: 2014Q1

REPORT INFORMATION
  Report Type: Spontaneous
  Country: GB (occurrence: None)
  Receive Date: 20140107
  Receipt Date: 20140107
  Transmission Date: 20141002
  Serious: Yes (Disabling)
  Sender: FDA-Public Use
  Company Number: GB-DEXPHARM-20131183

PATIENT
  Age: 37 Year
  Sex: Female

DRUGS (4)
  1. TEICOPLANIN [Suspect]
     Dosage: 800 MG STAT THEN 400MG ONCE DAILY FOR 7/7
     Dates: start: 20111223, end: 20111229
  2. CIPROFLOXACIN [Suspect]
     Route: 048
     Dates: start: 20111223
  3. OMEPRAZOLE [Suspect]
     Dosage: 10 MG SEP. DOSAGES/ INTERVAL: 1 IN1 DAYS
     Route: 048
  4. TRIMETHOPRIM [Concomitant]

REACTIONS (1)
  - Clostridium difficile infection [None]
